FAERS Safety Report 20339994 (Version 1)
Quarter: 2022Q1

REPORT INFORMATION
  Report Type: Spontaneous
  Country: FR (occurrence: FR)
  Receive Date: 20220117
  Receipt Date: 20220117
  Transmission Date: 20220423
  Serious: Yes (Hospitalization, Other)
  Sender: FDA-Public Use
  Company Number: None

PATIENT
  Age: 49 Year
  Sex: Male

DRUGS (15)
  1. CLONAZEPAM [Suspect]
     Active Substance: CLONAZEPAM
     Indication: Epilepsy
     Dosage: 6 MG, DAILY (1 TABLET 3 TIMES A DAY)
     Route: 048
  2. KEPPRA [Suspect]
     Active Substance: LEVETIRACETAM
     Dosage: 500 MG (1.5 TABLETS AT 8AM AND 1.5 TABLETS AT 8PM)
     Route: 065
  3. PHENOBARBITAL [Suspect]
     Active Substance: PHENOBARBITAL
     Indication: Epilepsy
     Dosage: 150 MG, DAILY (3 TABLETS IN THE MORNING)
     Route: 048
  4. PRAZEPAM [Suspect]
     Active Substance: PRAZEPAM
     Indication: Anxiety
     Dosage: 40 MG, DAILY (1 TABLET 4 TIMES A DAY)
     Route: 048
  5. VALPROATE SODIUM [Suspect]
     Active Substance: VALPROATE SODIUM
     Indication: Product administration error
     Dosage: 500 MG
     Route: 065
     Dates: start: 20210619
  6. CLOZAPINE [Suspect]
     Active Substance: CLOZAPINE
     Indication: Product administration error
     Dosage: 200 MG (1 TOTAL)
     Route: 048
     Dates: start: 20210619, end: 20210619
  7. ESCITALOPRAM OXALATE [Suspect]
     Active Substance: ESCITALOPRAM OXALATE
     Indication: Product administration error
     Dosage: 15 MG
     Route: 065
     Dates: start: 20210619
  8. LOXAPINE [Suspect]
     Active Substance: LOXAPINE
     Indication: Product administration error
     Dosage: 25 MG(1 TOTAL)1 SINGLE SOCKET
     Route: 048
     Dates: start: 20210619, end: 20210619
  9. ZOLOFT [Suspect]
     Active Substance: SERTRALINE HYDROCHLORIDE
     Indication: Product administration error
     Dosage: 25 MG
     Route: 065
     Dates: start: 20210619
  10. ALFUZOSIN [Concomitant]
     Active Substance: ALFUZOSIN
     Dosage: UNK
     Route: 065
     Dates: end: 20210705
  11. FINASTERIDE [Concomitant]
     Active Substance: FINASTERIDE
     Dosage: UNK
     Route: 065
     Dates: end: 20210705
  12. ESCITALOPRAM [Concomitant]
     Active Substance: ESCITALOPRAM OXALATE
     Dosage: 1 DF, DAILY (1 TABLET IN THE MORNING)
     Route: 065
  13. MESTINON [Concomitant]
     Active Substance: PYRIDOSTIGMINE BROMIDE
     Dosage: 2 DF, TID (2 TABLETS 3 TIMES A DAY)
     Route: 065
  14. POLYETHYLENE GLYCOL 4000 [Concomitant]
     Active Substance: POLYETHYLENE GLYCOL 4000
     Dosage: 1 SACHET AT 8AM AND 1 SACHET AT 8PM
     Route: 065
  15. KARDEGIC [Concomitant]
     Active Substance: ASPIRIN DL-LYSINE
     Dosage: 1 SACHET AT NOON
     Route: 065

REACTIONS (5)
  - Hypotension [Unknown]
  - Respiratory failure [Recovered/Resolved]
  - Respiratory failure [Unknown]
  - Pneumonia aspiration [Recovered/Resolved]
  - Respiratory acidosis [Unknown]

NARRATIVE: CASE EVENT DATE: 20210601
